FAERS Safety Report 22150822 (Version 2)
Quarter: 2023Q4

REPORT INFORMATION
  Report Type: Spontaneous
  Country: US (occurrence: US)
  Receive Date: 20230329
  Receipt Date: 20231107
  Transmission Date: 20240110
  Serious: No
  Sender: FDA-Public Use
  Company Number: US-SA-SAC20230327001178

PATIENT
  Sex: Male

DRUGS (1)
  1. DUPIXENT [Suspect]
     Active Substance: DUPILUMAB
     Indication: Dermatitis atopic
     Dosage: 300 MG, QOW
     Route: 058
     Dates: start: 20230210

REACTIONS (8)
  - Discomfort [Unknown]
  - Infection [Unknown]
  - Sleep disorder [Unknown]
  - Pruritus [Recovering/Resolving]
  - Product dose omission issue [Recovering/Resolving]
  - Dermatitis atopic [Recovering/Resolving]
  - Rash [Unknown]
  - Drug ineffective [Unknown]

NARRATIVE: CASE EVENT DATE: 20230101
